FAERS Safety Report 15478827 (Version 2)
Quarter: 2019Q2

REPORT INFORMATION
  Report Type: Report from Study
  Country: IL (occurrence: IL)
  Receive Date: 20181009
  Receipt Date: 20190508
  Transmission Date: 20190711
  Serious: Yes (Hospitalization)
  Sender: FDA-Public Use
  Company Number: PHHY2017IL121548

PATIENT
  Age: 26 Year
  Sex: Female
  Weight: 51 kg

DRUGS (2)
  1. EXJADE [Suspect]
     Active Substance: DEFERASIROX
     Indication: THALASSAEMIA ALPHA
     Dosage: 1500 MG, QD
     Route: 048
     Dates: start: 20150512, end: 20170813
  2. EXJADE [Suspect]
     Active Substance: DEFERASIROX
     Dosage: 2000 MG, QD
     Route: 048
     Dates: start: 201807

REACTIONS (5)
  - Maternal exposure during pregnancy [Unknown]
  - Blood iron increased [Unknown]
  - Normal newborn [Unknown]
  - Inflammation [Unknown]
  - White blood cell count increased [Unknown]

NARRATIVE: CASE EVENT DATE: 20170813
